FAERS Safety Report 7532775-7 (Version None)
Quarter: 2011Q2

REPORT INFORMATION
  Report Type: 
  Country: None (occurrence: None)
  Receive Date: 20110608
  Receipt Date: 20110531
  Transmission Date: 20111010
  Serious: Yes (Hospitalization)
  Sender: FDA-Public Use
  Company Number: B0712290A

PATIENT
  Sex: Male

DRUGS (2)
  1. ALEPSAL [Concomitant]
     Indication: EPILEPSY
     Dosage: 50MG PER DAY
     Route: 048
     Dates: start: 20010101
  2. LAMICTAL [Suspect]
     Dosage: 200MG TWICE PER DAY
     Route: 048
     Dates: start: 20050401

REACTIONS (5)
  - PYREXIA [None]
  - ASTHENIA [None]
  - DYSPNOEA [None]
  - MENINGITIS ASEPTIC [None]
  - NERVE COMPRESSION [None]
